FAERS Safety Report 7349944-1 (Version None)
Quarter: 2011Q1

REPORT INFORMATION
  Report Type: 
  Country: None (occurrence: None)
  Receive Date: 20110314
  Receipt Date: 20110310
  Transmission Date: 20110831
  Serious: Yes (Life-Threatening, Hospitalization)
  Sender: FDA-Public Use
  Company Number: DE-SANOFI-AVENTIS-2011SA010575

PATIENT
  Age: 44 Year
  Sex: Male

DRUGS (10)
  1. KEVATRIL [Concomitant]
     Indication: PREMEDICATION
     Route: 065
     Dates: start: 20110101, end: 20110101
  2. FORTECORTIN [Concomitant]
     Indication: PREMEDICATION
     Route: 065
     Dates: start: 20110101, end: 20110101
  3. CALCIUM GLUCONATE [Concomitant]
     Indication: PREMEDICATION
     Route: 065
     Dates: start: 20110101, end: 20110101
  4. DOCETAXEL [Suspect]
     Route: 041
     Dates: start: 20110120, end: 20110120
  5. OXALIPLATIN [Suspect]
     Route: 041
     Dates: start: 20110120, end: 20110120
  6. MAGNESIUM SULFATE [Concomitant]
     Indication: PREMEDICATION
     Route: 065
     Dates: start: 20110101, end: 20110101
  7. FOLINIC ACID [Suspect]
     Route: 041
     Dates: start: 20110120, end: 20110120
  8. NOVALGIN [Concomitant]
     Indication: PREMEDICATION
     Route: 065
     Dates: start: 20110101
  9. 5-FU [Suspect]
     Route: 041
     Dates: start: 20110120, end: 20110120
  10. ENOXAPARIN [Concomitant]
     Indication: PREMEDICATION
     Route: 065
     Dates: start: 20110101

REACTIONS (3)
  - TUMOUR HAEMORRHAGE [None]
  - ANAEMIA [None]
  - CARDIOVASCULAR DISORDER [None]
